FAERS Safety Report 25961476 (Version 1)
Quarter: 2025Q4

REPORT INFORMATION
  Report Type: Spontaneous
  Country: US (occurrence: US)
  Receive Date: 20251027
  Receipt Date: 20251027
  Transmission Date: 20260118
  Serious: Yes (Other)
  Sender: CSL BEHRING
  Company Number: US-BEH-2024186446

PATIENT
  Sex: Female

DRUGS (17)
  1. HIZENTRA [Suspect]
     Active Substance: HUMAN IMMUNOGLOBULIN G
     Dosage: 10G/50ML EVERY 2 WEEKS THROUGH 8 SITE
     Route: 058
     Dates: start: 20210330
  2. HIZENTRA [Suspect]
     Active Substance: HUMAN IMMUNOGLOBULIN G
     Dosage: UNK, QOW4G/20ML EVERY 2 WEEKS THROUGH 8 SITE2G/20ML EVERY 2 WEEKS THROUGH 8 SITE4G/20ML EVERY 2 WEEK
     Route: 058
     Dates: start: 20210330
  3. HIZENTRA [Suspect]
     Active Substance: HUMAN IMMUNOGLOBULIN G
     Dosage: 2G/20ML EVERY 2 WEEKS THROUGH 8 SITE
     Route: 058
     Dates: start: 20210330
  4. HIZENTRA [Suspect]
     Active Substance: HUMAN IMMUNOGLOBULIN G
     Dosage: 16 G EVERY 2 WEEKS THROUGH 8 SITE (2 GM/20ML, 4 GM/10ML, 10 GM/50ML)
     Route: 058
     Dates: start: 20250924
  5. CYMBALTA [Concomitant]
     Active Substance: DULOXETINE HYDROCHLORIDE
     Dosage: 20 MG
  6. Dymista allergy [Concomitant]
  7. METFORMIN HYDROCHLORIDE [Concomitant]
     Active Substance: METFORMIN HYDROCHLORIDE
     Dosage: 500 MG
  8. MUCUS RELIEF [Concomitant]
     Active Substance: GUAIFENESIN
  9. MINERALS\VITAMINS [Concomitant]
     Active Substance: MINERALS\VITAMINS
  10. VALACYCLOVIR HYDROCHLORIDE [Concomitant]
     Active Substance: VALACYCLOVIR HYDROCHLORIDE
     Dosage: 500 MG
  11. VITAMIN D3 [Concomitant]
     Active Substance: CHOLECALCIFEROL
  12. Duloxetine +pharma [Concomitant]
     Dosage: 60 MG
  13. Rosuvastatin +pharma [Concomitant]
     Dosage: 10 MG
  14. ESTRADIOL\NORETHINDRONE ACETATE [Concomitant]
     Active Substance: ESTRADIOL\NORETHINDRONE ACETATE
  15. VITAMIN D3 [Concomitant]
     Active Substance: CHOLECALCIFEROL
     Dosage: UNK
  16. VITAMINS [Concomitant]
     Active Substance: VITAMINS
  17. DYMISTA [Concomitant]
     Active Substance: AZELASTINE HYDROCHLORIDE\FLUTICASONE PROPIONATE
     Dosage: SPR 137-50;

REACTIONS (4)
  - Drug ineffective [Unknown]
  - Product dose omission in error [Recovered/Resolved]
  - Insurance issue [Unknown]
  - Product use issue [Unknown]
